FAERS Safety Report 5047366-X (Version None)
Quarter: 2006Q3

REPORT INFORMATION
  Report Type: 
  Country: None (occurrence: None)
  Receive Date: 20060703
  Receipt Date: 20060626
  Transmission Date: 20061208
  Serious: Yes (Other)
  Sender: FDA-Public Use
  Company Number: 2006-06-1247

PATIENT
  Age: 50 Year
  Sex: Female

DRUGS (5)
  1. PEG-INTRON [Suspect]
     Indication: HEPATITIS C
     Dosage: 180 MCG QWK
     Dates: start: 20050815, end: 20060527
  2. RIBAVIRIN [Suspect]
     Indication: HEPATITIS C
     Dosage: 400 MG QD ORAL
     Route: 048
     Dates: start: 20050815, end: 20060527
  3. ATIVAN [Concomitant]
  4. PROCHLORPERAZINE MALEATE [Concomitant]
  5. PROCRIT [Concomitant]

REACTIONS (20)
  - ANAEMIA [None]
  - BLISTER [None]
  - BLOOD PRESSURE INCREASED [None]
  - BURNING SENSATION [None]
  - DIARRHOEA [None]
  - ERYTHEMA [None]
  - HAEMOGLOBIN DECREASED [None]
  - HEADACHE [None]
  - HOT FLUSH [None]
  - INJECTION SITE ANAESTHESIA [None]
  - INJECTION SITE PAIN [None]
  - NAUSEA [None]
  - PARAESTHESIA [None]
  - PAROSMIA [None]
  - RASH ERYTHEMATOUS [None]
  - RASH PRURITIC [None]
  - SKIN EXFOLIATION [None]
  - TREMOR [None]
  - VARICOSE VEIN [None]
  - VEIN PAIN [None]
